FAERS Safety Report 4447110-0 (Version None)
Quarter: 2004Q3

REPORT INFORMATION
  Report Type: 
  Country: None (occurrence: None)
  Receive Date: 20040813
  Receipt Date: 20040526
  Transmission Date: 20050211
  Serious: No
  Sender: FDA-Public Use
  Company Number: S04-USA-03600-01

PATIENT
  Age: 85 Year
  Sex: Female

DRUGS (9)
  1. NAMENDA [Suspect]
     Indication: DEMENTIA
     Dosage: 5 MG QD PO
     Route: 048
     Dates: start: 20040521
  2. XANAX [Suspect]
     Dosage: 0.125 MG QD
  3. TENORMIN [Concomitant]
  4. ALTACE [Concomitant]
  5. IMDUR [Concomitant]
  6. PLAVIX [Concomitant]
  7. LIPITOR [Concomitant]
  8. PREVACID [Concomitant]
  9. AMBIEN [Concomitant]

REACTIONS (1)
  - SOMNOLENCE [None]
